FAERS Safety Report 5859614-4 (Version None)
Quarter: 2008Q3

REPORT INFORMATION
  Report Type: 
  Country: None (occurrence: None)
  Receive Date: 20080826
  Receipt Date: 20080826
  Transmission Date: 20090109
  Serious: Yes (Disabling)
  Sender: FDA-Public Use
  Company Number: None

PATIENT
  Age: 63 Year
  Sex: Male
  Weight: 89.3586 kg

DRUGS (1)
  1. LEVAQUIN [Suspect]
     Indication: BRONCHITIS
     Dosage: ONE PILL DAILY ONE A DAY
     Dates: start: 20080715, end: 20080722

REACTIONS (3)
  - BACK DISORDER [None]
  - GAIT DISTURBANCE [None]
  - TENDON RUPTURE [None]
